FAERS Safety Report 24200988 (Version 1)
Quarter: 2024Q3

REPORT INFORMATION
  Report Type: Spontaneous
  Country: DE (occurrence: DE)
  Receive Date: 20240812
  Receipt Date: 20240812
  Transmission Date: 20241016
  Serious: Yes (Other)
  Sender: MYLAN
  Company Number: None

PATIENT
  Age: 83 Year
  Sex: Male
  Weight: 60 kg

DRUGS (1)
  1. CITALOPRAM [Suspect]
     Active Substance: CITALOPRAM\CITALOPRAM HYDROBROMIDE
     Indication: Depression
     Dosage: UNK (10 - 30 MG)
     Route: 048
     Dates: start: 20240628, end: 20240722

REACTIONS (6)
  - Metabolic encephalopathy [Recovering/Resolving]
  - Delirium [Unknown]
  - Syncope [Recovered/Resolved]
  - Hyponatraemia [Recovering/Resolving]
  - Hypotonia [Recovering/Resolving]
  - Disturbance in attention [Unknown]

NARRATIVE: CASE EVENT DATE: 20240701
